FAERS Safety Report 25524001 (Version 1)
Quarter: 2025Q3

REPORT INFORMATION
  Report Type: Spontaneous
  Country: EU (occurrence: EU)
  Receive Date: 20250707
  Receipt Date: 20250707
  Transmission Date: 20251020
  Serious: Yes (Hospitalization)
  Sender: MYLAN
  Company Number: EU-MYLANLABS-2025M1055632

PATIENT
  Age: 80 Year
  Sex: Female

DRUGS (36)
  1. MIRTAZAPINE [Suspect]
     Active Substance: MIRTAZAPINE
     Indication: Major depression
  2. MIRTAZAPINE [Suspect]
     Active Substance: MIRTAZAPINE
     Route: 065
  3. MIRTAZAPINE [Suspect]
     Active Substance: MIRTAZAPINE
     Route: 065
  4. MIRTAZAPINE [Suspect]
     Active Substance: MIRTAZAPINE
  5. ESCITALOPRAM [Suspect]
     Active Substance: ESCITALOPRAM OXALATE
     Indication: Major depression
  6. ESCITALOPRAM [Suspect]
     Active Substance: ESCITALOPRAM OXALATE
     Route: 065
  7. ESCITALOPRAM [Suspect]
     Active Substance: ESCITALOPRAM OXALATE
     Route: 065
  8. ESCITALOPRAM [Suspect]
     Active Substance: ESCITALOPRAM OXALATE
  9. LETROZOLE [Suspect]
     Active Substance: LETROZOLE
     Indication: Major depression
  10. LETROZOLE [Suspect]
     Active Substance: LETROZOLE
     Route: 065
  11. LETROZOLE [Suspect]
     Active Substance: LETROZOLE
     Route: 065
  12. LETROZOLE [Suspect]
     Active Substance: LETROZOLE
  13. OLANZAPINE [Suspect]
     Active Substance: OLANZAPINE
     Indication: Major depression
  14. OLANZAPINE [Suspect]
     Active Substance: OLANZAPINE
     Route: 065
  15. OLANZAPINE [Suspect]
     Active Substance: OLANZAPINE
     Route: 065
  16. OLANZAPINE [Suspect]
     Active Substance: OLANZAPINE
  17. LORAZEPAM [Suspect]
     Active Substance: LORAZEPAM
     Indication: Epilepsy
  18. LORAZEPAM [Suspect]
     Active Substance: LORAZEPAM
  19. LORAZEPAM [Suspect]
     Active Substance: LORAZEPAM
     Route: 065
  20. LORAZEPAM [Suspect]
     Active Substance: LORAZEPAM
     Route: 065
  21. LORAZEPAM [Suspect]
     Active Substance: LORAZEPAM
  22. LORAZEPAM [Suspect]
     Active Substance: LORAZEPAM
  23. LORAZEPAM [Suspect]
     Active Substance: LORAZEPAM
     Route: 065
  24. LORAZEPAM [Suspect]
     Active Substance: LORAZEPAM
     Route: 065
  25. PROPOFOL [Suspect]
     Active Substance: PROPOFOL
     Indication: Epilepsy
  26. PROPOFOL [Suspect]
     Active Substance: PROPOFOL
     Route: 065
  27. PROPOFOL [Suspect]
     Active Substance: PROPOFOL
     Route: 065
  28. PROPOFOL [Suspect]
     Active Substance: PROPOFOL
  29. ETOMIDATE [Concomitant]
     Active Substance: ETOMIDATE
     Indication: Anaesthesia
  30. ETOMIDATE [Concomitant]
     Active Substance: ETOMIDATE
     Route: 065
  31. ETOMIDATE [Concomitant]
     Active Substance: ETOMIDATE
     Route: 065
  32. ETOMIDATE [Concomitant]
     Active Substance: ETOMIDATE
  33. SUCCINYLCHOLINE [Concomitant]
     Active Substance: SUCCINYLCHOLINE
     Indication: Anaesthesia
  34. SUCCINYLCHOLINE [Concomitant]
     Active Substance: SUCCINYLCHOLINE
     Route: 065
  35. SUCCINYLCHOLINE [Concomitant]
     Active Substance: SUCCINYLCHOLINE
     Route: 065
  36. SUCCINYLCHOLINE [Concomitant]
     Active Substance: SUCCINYLCHOLINE

REACTIONS (2)
  - Drug ineffective [Unknown]
  - Off label use [Unknown]
